FAERS Safety Report 9350031 (Version 3)
Quarter: 2013Q3

REPORT INFORMATION
  Report Type: Report from Study
  Country: US (occurrence: US)
  Receive Date: 20130615
  Receipt Date: 20130807
  Transmission Date: 20140515
  Serious: Yes (Other)
  Sender: FDA-Public Use
  Company Number: US-GENZYME-MIPO-1000439

PATIENT
  Age: 66 Year
  Sex: Male
  Weight: 79.3 kg

DRUGS (15)
  1. MIPOMERSEN [Suspect]
     Indication: TYPE IIA HYPERLIPIDAEMIA
     Dosage: 200 MG, QW
     Route: 058
     Dates: start: 20091207
  2. ATORVASTATIN [Concomitant]
     Indication: BLOOD CHOLESTEROL INCREASED
     Dosage: 80 MG, QD
     Route: 048
     Dates: start: 20100905
  3. ATORVASTATIN [Concomitant]
     Indication: TYPE IIA HYPERLIPIDAEMIA
  4. NIASPAN [Concomitant]
     Indication: TYPE IIA HYPERLIPIDAEMIA
     Dosage: 1000 MG, QD
     Route: 048
     Dates: start: 20100905
  5. ASA [Concomitant]
     Indication: CARDIOVASCULAR EVENT PROPHYLAXIS
     Dosage: 81 MG, QD
     Route: 048
     Dates: start: 20100905, end: 20130416
  6. ASA [Concomitant]
     Dosage: 81 MG, QD
     Route: 048
     Dates: start: 20130501
  7. VITAMIN C [Concomitant]
     Indication: MEDICAL DIET
     Dosage: 1000 MG, QD
     Route: 048
     Dates: start: 20100905
  8. VITAMIN D [Concomitant]
     Indication: MEDICAL DIET
     Dosage: 2000 IU, QD
     Route: 048
     Dates: start: 20100905
  9. FOLIC ACID [Concomitant]
     Indication: MEDICAL DIET
     Dosage: 400 MCG, QD
     Route: 048
     Dates: start: 20100905
  10. CALCIUM [Concomitant]
     Indication: MEDICAL DIET
     Dosage: 500 MG, QD
     Route: 048
     Dates: start: 20100905
  11. MUCINEX [Concomitant]
     Indication: RHINITIS ALLERGIC
     Dosage: 1 PILL, BID
     Route: 048
     Dates: start: 20111201
  12. ADVIL [Concomitant]
     Indication: RHINITIS ALLERGIC
     Dosage: 1 PILL, PRN
     Route: 048
     Dates: start: 20111201
  13. OMACOR [Concomitant]
     Indication: TYPE IIA HYPERLIPIDAEMIA
     Dosage: 2 G, QD
     Route: 048
     Dates: start: 20101208, end: 20130416
  14. OMACOR [Concomitant]
     Indication: BLOOD CHOLESTEROL INCREASED
     Dosage: 2 G, QD
     Route: 048
     Dates: start: 20130501
  15. OMACOR [Concomitant]
     Indication: CONSTIPATION PROPHYLAXIS

REACTIONS (1)
  - Squamous cell carcinoma of skin [Recovered/Resolved]
